FAERS Safety Report 22651512 (Version 3)
Quarter: 2023Q4

REPORT INFORMATION
  Report Type: Report from Study
  Country: US (occurrence: US)
  Receive Date: 20230628
  Receipt Date: 20231122
  Transmission Date: 20240110
  Serious: Yes (Hospitalization)
  Sender: FDA-Public Use
  Company Number: US-TAKEDA-2023TUS044089

PATIENT
  Age: 55 Year
  Sex: Male
  Weight: 78.9 kg

DRUGS (3)
  1. BRIGATINIB [Suspect]
     Active Substance: BRIGATINIB
     Indication: Lung neoplasm malignant
     Dosage: 180 MILLIGRAM, QD
     Route: 048
     Dates: start: 20230315
  2. BRIGATINIB [Suspect]
     Active Substance: BRIGATINIB
     Dosage: 120 MILLIGRAM, QD
     Route: 065
  3. BRIGATINIB [Suspect]
     Active Substance: BRIGATINIB
     Dosage: 180 MILLIGRAM, QD
     Route: 048
     Dates: start: 20230411, end: 20230629

REACTIONS (6)
  - Adverse drug reaction [Recovered/Resolved]
  - Contusion [Unknown]
  - Illness [Unknown]
  - Oropharyngeal discomfort [Unknown]
  - Toxicity to various agents [Unknown]
  - Product preparation error [Unknown]

NARRATIVE: CASE EVENT DATE: 20230613
